FAERS Safety Report 4695552-0 (Version None)
Quarter: 2005Q2

REPORT INFORMATION
  Report Type: 
  Country: None (occurrence: None)
  Receive Date: 20050523
  Receipt Date: 20050511
  Transmission Date: 20051028
  Serious: Yes (Hospitalization)
  Sender: FDA-Public Use
  Company Number: 2005CG00906

PATIENT
  Age: 599 Month
  Sex: Male

DRUGS (6)
  1. CRESTOR [Suspect]
     Route: 048
     Dates: start: 20040101, end: 20050301
  2. MODAMIDE [Concomitant]
  3. COVERSYL [Concomitant]
  4. EUPRESSYL [Concomitant]
  5. LOXEN LP [Concomitant]
  6. PAROXETINE HCL [Concomitant]

REACTIONS (1)
  - MUSCLE RUPTURE [None]
